FAERS Safety Report 20752944 (Version 1)
Quarter: 2022Q2

REPORT INFORMATION
  Report Type: Spontaneous
  Country: US (occurrence: None)
  Receive Date: 20220426
  Receipt Date: 20220426
  Transmission Date: 20220721
  Serious: No
  Sender: FDA-Public Use
  Company Number: US-ROCHE-2982381

PATIENT
  Sex: Female

DRUGS (13)
  1. ESBRIET [Suspect]
     Active Substance: PIRFENIDONE
     Indication: Diverticulitis
     Dosage: TAKE 1 TABLET BY MOUTH 3 TIMES A DAY FOR 1 WEEK THEN 2 TABLETS BY MOUTH 3 TIMES A DAY AND THEN 3 TAB
     Route: 048
     Dates: start: 20211109
  2. AMOXICILLIN [Concomitant]
     Active Substance: AMOXICILLIN
  3. PANTOPRAZOLE [Concomitant]
     Active Substance: PANTOPRAZOLE
  4. BENADRYL [Concomitant]
     Active Substance: DIPHENHYDRAMINE HYDROCHLORIDE
  5. IMODIUM A-D [Concomitant]
     Active Substance: LOPERAMIDE HYDROCHLORIDE
  6. PROTONIX [Concomitant]
     Active Substance: PANTOPRAZOLE SODIUM
  7. ALPHA LIPOIC [Concomitant]
  8. AMBIEN [Concomitant]
     Active Substance: ZOLPIDEM TARTRATE
  9. BETAMETHASONE [Concomitant]
     Active Substance: BETAMETHASONE
  10. CLARITIN [Concomitant]
     Active Substance: LORATADINE
  11. DESONIDE [Concomitant]
     Active Substance: DESONIDE
  12. FAMOTIDINE [Concomitant]
     Active Substance: FAMOTIDINE
  13. FOLIC ACID [Concomitant]
     Active Substance: FOLIC ACID

REACTIONS (1)
  - Blister [Unknown]
